FAERS Safety Report 7307542-X (Version None)
Quarter: 2011Q1

REPORT INFORMATION
  Report Type: 
  Country: None (occurrence: None)
  Receive Date: 20110211
  Receipt Date: 20110204
  Transmission Date: 20110831
  Serious: Yes (Death, Hospitalization)
  Sender: FDA-Public Use
  Company Number: 112600

PATIENT
  Age: 68 Year
  Sex: Male

DRUGS (2)
  1. CYCLOSPORINE [Suspect]
     Indication: IMMUNOSUPPRESSANT DRUG THERAPY
  2. AZATHIOPRINE SODIUM FOR INJ. USP 100MG - BEDFORD LABS, INC. [Suspect]
     Indication: IMMUNOSUPPRESSANT DRUG THERAPY

REACTIONS (6)
  - ACUTE RESPIRATORY FAILURE [None]
  - RENAL IMPAIRMENT [None]
  - METASTASES TO LYMPH NODES [None]
  - THROMBOCYTOPENIA [None]
  - NEUROENDOCRINE CARCINOMA OF THE SKIN [None]
  - BRONCHOPNEUMONIA [None]
